FAERS Safety Report 4548939-0 (Version None)
Quarter: 2005Q1

REPORT INFORMATION
  Report Type: 
  Country: None (occurrence: None)
  Receive Date: 20041227
  Receipt Date: 20041107
  Transmission Date: 20050727
  Serious: No
  Sender: FDA-Public Use
  Company Number: 04P-163-0279902-00

PATIENT
  Age: 52 Year
  Sex: Female
  Weight: 66.2252 kg

DRUGS (10)
  1. HUMIRA [Suspect]
     Indication: RHEUMATOID ARTHRITIS
     Dosage: 40 MG, 1 IN 2 WK, SUBCUTANEOUS
     Route: 058
     Dates: start: 20041025
  2. LEVOTHYROXNE SODIUM [Concomitant]
  3. HYDROXYCHLOROQUINE PHOSPHATE [Concomitant]
  4. AMOXICILLIN TRIHYDRATE [Concomitant]
  5. PANTOPRAZOLE [Concomitant]
  6. COENZYME A [Concomitant]
  7. ASPIRIN [Concomitant]
  8. CALCIUM GLUCONATE [Concomitant]
  9. MULTIVITAMIN [Concomitant]
  10. MELOXICAM [Concomitant]

REACTIONS (5)
  - CHILLS [None]
  - FATIGUE [None]
  - FEELING COLD [None]
  - HEADACHE [None]
  - PAIN IN EXTREMITY [None]
